FAERS Safety Report 6376172-9 (Version None)
Quarter: 2009Q3

REPORT INFORMATION
  Report Type: 
  Country: None (occurrence: None)
  Receive Date: 20090921
  Receipt Date: 20090909
  Transmission Date: 20100115
  Serious: Yes (Other)
  Sender: FDA-Public Use
  Company Number: GXKR2009JP09560

PATIENT
  Age: 46 Year
  Sex: Female

DRUGS (6)
  1. NITRAZEPAM [Suspect]
     Indication: AGITATION
     Dosage: 10 MG/DAY
  2. FLUMAZENIL [Suspect]
     Indication: REVERSAL OF SEDATION
     Dosage: 0.3 MG, INTRAVENOUS; 0.3MG - 0.5MG
     Route: 042
  3. ATROPINE [Concomitant]
  4. THIOPENTAL SODIUM [Concomitant]
  5. SUCCINYLCHOLINE CHLORIDE [Concomitant]
  6. NICARDIPINE HCL [Concomitant]

REACTIONS (7)
  - AGITATION [None]
  - CHOKING SENSATION [None]
  - FEAR OF DEATH [None]
  - HALLUCINATION, AUDITORY [None]
  - HYPERVENTILATION [None]
  - PANIC ATTACK [None]
  - SUICIDE ATTEMPT [None]
